FAERS Safety Report 9476870 (Version 1)
Quarter: 2013Q3

REPORT INFORMATION
  Report Type: Spontaneous
  Country: US (occurrence: US)
  Receive Date: 20130826
  Receipt Date: 20130826
  Transmission Date: 20140515
  Serious: No
  Sender: FDA-Public Use
  Company Number: US-009507513-1308USA009639

PATIENT
  Sex: Female

DRUGS (2)
  1. CLARITIN REDITABS 12HR [Suspect]
     Indication: PRODUCT USED FOR UNKNOWN INDICATION
     Dosage: UNK, UNKNOWN
     Route: 048
     Dates: start: 2013
  2. CLARITIN REDITABS 12HR [Suspect]
     Indication: MEDICAL OBSERVATION

REACTIONS (3)
  - Cold sweat [Recovered/Resolved]
  - Nausea [Recovered/Resolved]
  - Dizziness [Recovered/Resolved]
